FAERS Safety Report 11229460 (Version 1)
Quarter: 2015Q2

REPORT INFORMATION
  Report Type: Spontaneous
  Country: US (occurrence: US)
  Receive Date: 20150630
  Receipt Date: 20150630
  Transmission Date: 20150821
  Serious: Yes (Other)
  Sender: FDA-Public Use
  Company Number: US-MYLANLABS-2015M1021184

PATIENT

DRUGS (2)
  1. FENTANYL. [Suspect]
     Active Substance: FENTANYL
     Indication: AGITATION POSTOPERATIVE
     Dosage: ABOUT 4 MCG/KG/HOUR
     Route: 041
  2. MIDAZOLAM [Suspect]
     Active Substance: MIDAZOLAM\MIDAZOLAM HYDROCHLORIDE
     Indication: AGITATION POSTOPERATIVE
     Dosage: ABOUT 2 MG/KG/HOUR
     Route: 041

REACTIONS (1)
  - Delirium [Recovering/Resolving]
